FAERS Safety Report 4404277-8 (Version None)
Quarter: 2004Q3

REPORT INFORMATION
  Report Type: 
  Country: None (occurrence: None)
  Receive Date: 20040722
  Receipt Date: 20040713
  Transmission Date: 20050211
  Serious: Yes (Other)
  Sender: FDA-Public Use
  Company Number: PHEH2004US07587

PATIENT
  Sex: Female

DRUGS (6)
  1. ESTROGEN [Suspect]
     Indication: HORMONE REPLACEMENT THERAPY
  2. MPA [Suspect]
     Indication: HORMONE REPLACEMENT THERAPY
  3. PREMPRO [Suspect]
  4. PREMARIN [Suspect]
  5. CYCRIN [Suspect]
  6. PROVERA [Suspect]

REACTIONS (5)
  - BREAST CANCER [None]
  - BREAST OPERATION [None]
  - DISEASE PROGRESSION [None]
  - MULTIPLE SCLEROSIS [None]
  - STRESS SYMPTOMS [None]
